FAERS Safety Report 22112281 (Version 1)
Quarter: 2023Q1

REPORT INFORMATION
  Report Type: Report from Study
  Country: CA (occurrence: CA)
  Receive Date: 20230318
  Receipt Date: 20230318
  Transmission Date: 20230418
  Serious: Yes (Other)
  Sender: FDA-Public Use
  Company Number: CA-002147023-NVSC2022CA203101

PATIENT
  Age: 36 Year
  Sex: Female

DRUGS (1)
  1. HYRIMOZ [Suspect]
     Active Substance: ADALIMUMAB-ADAZ
     Indication: Crohn^s disease
     Dosage: 40 MG, QW
     Route: 058
     Dates: start: 20220616

REACTIONS (10)
  - Crohn^s disease [Recovered/Resolved]
  - Diarrhoea [Unknown]
  - Illness [Unknown]
  - Fistula [Unknown]
  - Weight decreased [Unknown]
  - COVID-19 [Unknown]
  - Infection [Unknown]
  - Anaemia [Unknown]
  - Off label use [Unknown]
  - Treatment failure [Unknown]

NARRATIVE: CASE EVENT DATE: 20220827
